FAERS Safety Report 9466755 (Version 1)
Quarter: 2013Q3

REPORT INFORMATION
  Report Type: Spontaneous
  Country: DE (occurrence: DE)
  Receive Date: 20130820
  Receipt Date: 20130820
  Transmission Date: 20140515
  Serious: Yes (Life-Threatening)
  Sender: FDA-Public Use
  Company Number: DE-BAYER-2013-098780

PATIENT
  Age: 61 Year
  Sex: 0

DRUGS (4)
  1. XARELTO [Suspect]
     Indication: ATRIAL FIBRILLATION
     Dosage: 20 MG, QD
  2. XARELTO [Interacting]
     Indication: CEREBROVASCULAR ACCIDENT PROPHYLAXIS
  3. ASS [Interacting]
     Indication: ANGIOGRAM
  4. CLOPIDOGREL [Interacting]
     Indication: ANGIOGRAM

REACTIONS (3)
  - Cerebral haemorrhage [None]
  - Visual impairment [None]
  - Drug interaction [None]
